FAERS Safety Report 5355632-3 (Version None)
Quarter: 2007Q2

REPORT INFORMATION
  Report Type: 
  Country: None (occurrence: None)
  Receive Date: 20070613
  Receipt Date: 20070605
  Transmission Date: 20071010
  Serious: Yes (Hospitalization)
  Sender: FDA-Public Use
  Company Number: B0474955A

PATIENT
  Sex: Male

DRUGS (6)
  1. AVANDAMET [Suspect]
     Indication: DIABETES MELLITUS
     Route: 048
     Dates: end: 20070517
  2. DIAMICRON [Concomitant]
  3. GABAPENTIN [Concomitant]
  4. PANTOPRAZOLE SODIUM [Concomitant]
  5. METOPROLOL SUCCINATE [Concomitant]
  6. FRUSEMIDE [Concomitant]

REACTIONS (2)
  - CARDIAC FAILURE [None]
  - CONDITION AGGRAVATED [None]
